FAERS Safety Report 23587346 (Version 1)
Quarter: 2024Q1

REPORT INFORMATION
  Report Type: Spontaneous
  Country: CN (occurrence: CN)
  Receive Date: 20240301
  Receipt Date: 20240301
  Transmission Date: 20240409
  Serious: Yes (Hospitalization, Other)
  Sender: FDA-Public Use
  Company Number: CN-PFIZER INC-PV202400029058

PATIENT
  Age: 6 Year
  Sex: Female
  Weight: 18 kg

DRUGS (6)
  1. METHOTREXATE SODIUM [Suspect]
     Active Substance: METHOTREXATE SODIUM
     Indication: Chemotherapy
     Dosage: 17.5 ML, 1X/DAY
     Route: 041
     Dates: start: 20240217, end: 20240218
  2. METHOTREXATE SODIUM [Suspect]
     Active Substance: METHOTREXATE SODIUM
     Dosage: 17.5 ML, 1X/DAY
     Route: 041
     Dates: start: 20240217, end: 20240218
  3. METHOTREXATE SODIUM [Suspect]
     Active Substance: METHOTREXATE SODIUM
     Dosage: 4 ML, 1X/DAY
     Route: 041
     Dates: start: 20240217, end: 20240218
  4. SODIUM CHLORIDE [Concomitant]
     Active Substance: SODIUM CHLORIDE
     Indication: Vehicle solution use
     Dosage: 250 ML, 1X/DAY
     Route: 041
     Dates: start: 20240217, end: 20240218
  5. SODIUM CHLORIDE [Concomitant]
     Active Substance: SODIUM CHLORIDE
     Dosage: 250 ML, 1X/DAY
     Route: 041
     Dates: start: 20240217, end: 20240218
  6. SODIUM CHLORIDE [Concomitant]
     Active Substance: SODIUM CHLORIDE
     Indication: Vehicle solution use
     Dosage: 25 ML, 1X/DAY
     Route: 041
     Dates: start: 20240217, end: 20240218

REACTIONS (4)
  - Anal haemorrhage [Recovering/Resolving]
  - Mouth ulceration [Recovering/Resolving]
  - Anal ulcer [Recovering/Resolving]
  - Lip haemorrhage [Recovering/Resolving]

NARRATIVE: CASE EVENT DATE: 20240220
